FAERS Safety Report 6419466-0 (Version None)
Quarter: 2009Q4

REPORT INFORMATION
  Report Type: 
  Country: None (occurrence: None)
  Receive Date: 20091029
  Receipt Date: 20091020
  Transmission Date: 20100525
  Serious: Yes (Other)
  Sender: FDA-Public Use
  Company Number: US-AMGEN-QUU370287

PATIENT
  Sex: Male
  Weight: 89.4 kg

DRUGS (12)
  1. ENBREL [Suspect]
     Indication: DRUG USE FOR UNKNOWN INDICATION
     Route: 058
  2. EFFEXOR [Concomitant]
  3. DIOVAN HCT [Concomitant]
  4. TRAMADOL HCL [Concomitant]
  5. BACLOFEN [Concomitant]
  6. FENOPROFEN CALCIUM [Concomitant]
  7. NEXIUM [Concomitant]
  8. NEBIVOLOL [Concomitant]
  9. CEREFOLIN [Concomitant]
  10. LUNESTA [Concomitant]
  11. ADDERALL 10 [Concomitant]
  12. CARBIDOPA-LEVODOPA [Concomitant]

REACTIONS (2)
  - ARTHROPOD BITE [None]
  - STAPHYLOCOCCAL INFECTION [None]
